FAERS Safety Report 16949132 (Version 2)
Quarter: 2019Q4

REPORT INFORMATION
  Report Type: Spontaneous
  Country: US (occurrence: US)
  Receive Date: 20191023
  Receipt Date: 20191023
  Transmission Date: 20200122
  Serious: No
  Sender: FDA-Public Use
  Company Number: US-PURDUE-USA-2019-0148729

PATIENT

DRUGS (1)
  1. OXYCODONE HCL TABLETS (91-490) [Suspect]
     Active Substance: OXYCODONE HYDROCHLORIDE
     Indication: PAIN
     Route: 048

REACTIONS (5)
  - Ear pain [Unknown]
  - Throat tightness [Unknown]
  - Inadequate analgesia [Unknown]
  - Nasal pruritus [Unknown]
  - Unevaluable event [Unknown]
